FAERS Safety Report 7215635-0 (Version None)
Quarter: 2010Q4

REPORT INFORMATION
  Report Type: 
  Country: None (occurrence: None)
  Receive Date: 20101126
  Receipt Date: 20101021
  Transmission Date: 20110411
  Serious: No
  Sender: FDA-Public Use
  Company Number: 316939

PATIENT
  Age: 55 Year
  Sex: Female

DRUGS (1)
  1. VICTOZA [Suspect]
     Indication: METABOLIC SYNDROME
     Dosage: 0.6 MG, QD, SUBCUTANEOUS ;1.2 MG, QD
     Route: 058

REACTIONS (1)
  - INJECTION SITE HAEMATOMA [None]
